FAERS Safety Report 18807146 (Version 1)
Quarter: 2021Q1

REPORT INFORMATION
  Report Type: Spontaneous
  Country: US (occurrence: US)
  Receive Date: 20210128
  Receipt Date: 20210128
  Transmission Date: 20210419
  Serious: No
  Sender: FDA-Public Use
  Company Number: None

PATIENT
  Age: 60 Year
  Sex: Male
  Weight: 81 kg

DRUGS (2)
  1. ATORVASTATIN CALCIUM. [Suspect]
     Active Substance: ATORVASTATIN CALCIUM
     Indication: HYPERCHOLESTEROLAEMIA
     Route: 048
     Dates: start: 20201223, end: 20201230
  2. LOSARTAN. [Concomitant]
     Active Substance: LOSARTAN
     Dates: start: 20150510

REACTIONS (3)
  - Therapy change [None]
  - Tendon pain [None]
  - Arteriosclerosis [None]

NARRATIVE: CASE EVENT DATE: 20201230
